FAERS Safety Report 25411222 (Version 2)
Quarter: 2025Q3

REPORT INFORMATION
  Report Type: Report from Study
  Country: US (occurrence: US)
  Receive Date: 20250609
  Receipt Date: 20250909
  Transmission Date: 20251020
  Serious: Yes (Other)
  Sender: ABBVIE
  Company Number: US-ABBVIE-6308733

PATIENT
  Age: 57 Year
  Sex: Female
  Weight: 61 kg

DRUGS (1)
  1. SKYRIZI [Suspect]
     Active Substance: RISANKIZUMAB-RZAA
     Indication: Product used for unknown indication
     Route: 058
     Dates: start: 20240401

REACTIONS (9)
  - Eye operation [Recovered/Resolved]
  - Pruritus [Not Recovered/Not Resolved]
  - Fall [Unknown]
  - Wrist fracture [Unknown]
  - Musculoskeletal disorder [Unknown]
  - Ocular procedural complication [Recovered/Resolved]
  - Face injury [Unknown]
  - Skin laceration [Unknown]
  - Eye injury [Unknown]

NARRATIVE: CASE EVENT DATE: 20241201
